FAERS Safety Report 9435062 (Version 1)
Quarter: 2013Q3

REPORT INFORMATION
  Report Type: Spontaneous
  Country: US (occurrence: US)
  Receive Date: 20130801
  Receipt Date: 20130801
  Transmission Date: 20140515
  Serious: No
  Sender: FDA-Public Use
  Company Number: US-PFIZER INC-2013222920

PATIENT
  Age: 57 Year
  Sex: Female

DRUGS (7)
  1. MEDROL [Suspect]
     Dosage: 4 MG, AS DIRECTED
     Route: 048
  2. BISMUTH [Concomitant]
     Dosage: 2 TABLETS AS NEEDED 8 TIME(S) A DAY
  3. LISINOPRIL [Concomitant]
     Dosage: 20 MG, 1X/DAY
  4. CIPROFLOXACIN [Concomitant]
     Dosage: 500 MG, EVERY 12 HRS WITH FOOD
  5. BENTYL [Concomitant]
     Dosage: 20 MG, 4X/DAY
  6. OMEPRAZOLE [Concomitant]
     Dosage: 40 MG, 1X/DAY
  7. CALCIUM 600 + D [Concomitant]
     Dosage: CALCIUM 600 MG / VITAMIN D 400 MG, 1 DF, 2X/DAY WITH FOOD
     Route: 048

REACTIONS (1)
  - Rash [Recovering/Resolving]
